FAERS Safety Report 9182585 (Version 2)
Quarter: 2013Q2

REPORT INFORMATION
  Report Type: Spontaneous
  Country: US (occurrence: US)
  Receive Date: 20130322
  Receipt Date: 20130516
  Transmission Date: 20140414
  Serious: No
  Sender: FDA-Public Use
  Company Number: US-PFIZER INC-2013095268

PATIENT
  Age: 37 Year
  Sex: Male

DRUGS (4)
  1. NEURONTIN [Suspect]
     Dosage: 800 MG, 3X/DAY
     Route: 048
  2. BACLOFEN [Concomitant]
     Dosage: UNK
  3. TRAZODONE [Concomitant]
     Dosage: UNK
  4. NORCO [Concomitant]
     Dosage: UNK

REACTIONS (2)
  - Muscle spasms [Unknown]
  - Paraesthesia [Unknown]
